FAERS Safety Report 7499200-6 (Version None)
Quarter: 2011Q2

REPORT INFORMATION
  Report Type: 
  Country: None (occurrence: None)
  Receive Date: 20110524
  Receipt Date: 20110516
  Transmission Date: 20111010
  Serious: No
  Sender: FDA-Public Use
  Company Number: US-B.I. PHARMACEUTICALS,INC./RIDGEFIELD-2011-BP-13200BP

PATIENT
  Age: 81 Year
  Sex: Male

DRUGS (3)
  1. AGGRENOX [Suspect]
     Indication: CEREBROVASCULAR ACCIDENT PROPHYLAXIS
     Route: 048
     Dates: start: 20110415
  2. LIPITOR [Concomitant]
  3. FOSINOPRIL SODIUM [Concomitant]

REACTIONS (2)
  - POLLAKIURIA [None]
  - DIARRHOEA [None]
